FAERS Safety Report 8086018 (Version 2)
Quarter: 2013Q1

REPORT INFORMATION
  Report Type: Spontaneous
  Country: US (occurrence: US)
  Receive Date: 20110811
  Receipt Date: 20130215
  Transmission Date: 20140127
  Serious: Yes (Other)
  Sender: FDA-Public Use
  Company Number: US-ROCHE-795911

PATIENT
  Age: 15 None
  Sex: Male
  Weight: 97.61 kg

DRUGS (2)
  1. ACCUTANE [Suspect]
     Indication: ACNE
     Route: 065
     Dates: start: 19951215, end: 19970111
  2. ACCUTANE [Suspect]
     Route: 065

REACTIONS (6)
  - Injury [Unknown]
  - Inflammatory bowel disease [Unknown]
  - Colitis ulcerative [Unknown]
  - Pancreatitis [Unknown]
  - Depression [Unknown]
  - Hepatic enzyme abnormal [Unknown]
